FAERS Safety Report 4607631-4 (Version None)
Quarter: 2005Q1

REPORT INFORMATION
  Report Type: 
  Country: None (occurrence: None)
  Receive Date: 20050309
  Receipt Date: 20050218
  Transmission Date: 20050727
  Serious: Yes (Other)
  Sender: FDA-Public Use
  Company Number: GBS050216716

PATIENT
  Age: 56 Year
  Sex: Female
  Weight: 30 kg

DRUGS (2)
  1. FLUOXETINE [Suspect]
     Indication: DEPRESSION
     Dosage: 20 MG
     Dates: start: 20040105, end: 20050211
  2. ESTRADIOL [Concomitant]

REACTIONS (1)
  - OPTIC NEURITIS [None]
